FAERS Safety Report 8911553 (Version 2)
Quarter: 2012Q4

REPORT INFORMATION
  Report Type: 
  Country: US (occurrence: US)
  Receive Date: 20121116
  Receipt Date: 20121130
  Transmission Date: 20130627
  Serious: Yes (Other)
  Sender: FDA-Public Use
  Company Number: US-PFIZER INC-2012286468

PATIENT
  Age: 74 Year
  Sex: Female
  Weight: 38 kg

DRUGS (2)
  1. LIPITOR [Suspect]
     Indication: HIGH CHOLESTEROL
     Dosage: 10 mg, once a day
     Route: 048
  2. SYNTHROID [Concomitant]
     Indication: THYROID DISORDER
     Dosage: 75 mg, UNK

REACTIONS (2)
  - Bacterial infection [Not Recovered/Not Resolved]
  - Thyroid function test abnormal [Unknown]
